FAERS Safety Report 8768403 (Version 1)
Quarter: 2012Q4

REPORT INFORMATION
  Report Type: 
  Country: US (occurrence: US)
  Receive Date: 20120904
  Receipt Date: 20120904
  Transmission Date: 20130627
  Serious: No
  Sender: FDA-Public Use
  Company Number: US-PFIZER INC-2012213455

PATIENT
  Age: 23 Month
  Sex: Female
  Weight: 11.7 kg

DRUGS (1)
  1. CLEOCIN [Suspect]
     Indication: INFECTED BITES
     Dosage: 75 mg, UNK
     Route: 048
     Dates: start: 20120826, end: 20120829

REACTIONS (3)
  - Product taste abnormal [Unknown]
  - Product odour abnormal [Unknown]
  - Glossodynia [Unknown]
